FAERS Safety Report 4577252-0 (Version None)
Quarter: 2005Q1

REPORT INFORMATION
  Report Type: 
  Country: None (occurrence: None)
  Receive Date: 20050209
  Receipt Date: 20050126
  Transmission Date: 20050727
  Serious: Yes (Death)
  Sender: FDA-Public Use
  Company Number: 2004AL000960

PATIENT
  Age: 39 Year
  Sex: Female

DRUGS (6)
  1. HYDRAMINE COUGH SYRUP (DIPHENHYDRAMINE HYDROCHLORIDE COUGH SYRUP) (ALP [Suspect]
     Dosage: PO
     Route: 048
  2. HYDRAMINE [Suspect]
     Dosage: PO
     Route: 048
  3. PAROXETINE HCL [Suspect]
     Dosage: PO
     Route: 048
  4. VENLAFAXINE HCL [Suspect]
     Dosage: PO
     Route: 048
  5. ETHANOL [Suspect]
     Dosage: PO
     Route: 048
  6. RISPERIDONE [Suspect]
     Dosage: PO
     Route: 048

REACTIONS (7)
  - BLOOD PRESSURE DIASTOLIC DECREASED [None]
  - CARDIAC ARREST [None]
  - COMPLETED SUICIDE [None]
  - ELECTROCARDIOGRAM ST SEGMENT ELEVATION [None]
  - HEART RATE INCREASED [None]
  - INTENTIONAL MISUSE [None]
  - LOSS OF CONSCIOUSNESS [None]
